FAERS Safety Report 6760500-6 (Version None)
Quarter: 2010Q2

REPORT INFORMATION
  Report Type: 
  Country: None (occurrence: None)
  Receive Date: 20100607
  Receipt Date: 20100607
  Transmission Date: 20101027
  Serious: Yes (Other)
  Sender: FDA-Public Use
  Company Number: None

PATIENT
  Age: 48 Year
  Sex: Male
  Weight: 70.45 kg

DRUGS (1)
  1. GAMMAGARD LIQUID [Suspect]
     Indication: CHRONIC INFLAMMATORY DEMYELINATING POLYRADICULONEUROPATHY
     Dosage: 70G EVERY 2 WEEKS IV DRIP
     Route: 041
     Dates: start: 20100601, end: 20100614

REACTIONS (2)
  - INFUSION RELATED REACTION [None]
  - URTICARIA [None]
